FAERS Safety Report 13671852 (Version 6)
Quarter: 2018Q2

REPORT INFORMATION
  Report Type: Spontaneous
  Country: BR (occurrence: BR)
  Receive Date: 20170620
  Receipt Date: 20180423
  Transmission Date: 20180711
  Serious: Yes (Other)
  Sender: FDA-Public Use
  Company Number: BR-BRISTOL-MYERS SQUIBB COMPANY-BMS-2017-052987

PATIENT
  Age: 52 Year
  Sex: Male

DRUGS (1)
  1. OPDIVO [Suspect]
     Active Substance: NIVOLUMAB
     Indication: MALIGNANT MELANOMA
     Dosage: 3 MG/KG, UNK
     Route: 042
     Dates: start: 20170102

REACTIONS (13)
  - Rash [Unknown]
  - Pollakiuria [Unknown]
  - Haematochezia [Unknown]
  - Abdominal pain upper [Unknown]
  - Weight increased [Unknown]
  - Myalgia [Recovered/Resolved]
  - Rash pruritic [Unknown]
  - Frequent bowel movements [Unknown]
  - Headache [Unknown]
  - Pigmentation disorder [Unknown]
  - Faeces discoloured [Unknown]
  - Cough [Unknown]
  - Polyuria [Unknown]

NARRATIVE: CASE EVENT DATE: 2017
